FAERS Safety Report 23751951 (Version 1)
Quarter: 2024Q2

REPORT INFORMATION
  Report Type: Report from Study
  Country: UY (occurrence: UY)
  Receive Date: 20240417
  Receipt Date: 20240417
  Transmission Date: 20240716
  Serious: Yes (Hospitalization, Other)
  Sender: FDA-Public Use
  Company Number: UY-ABBVIE-5719154

PATIENT
  Age: 58 Year
  Sex: Female

DRUGS (1)
  1. RINVOQ [Suspect]
     Active Substance: UPADACITINIB
     Indication: Rheumatoid arthritis
     Dosage: FORM STRENGTH: 15 MILLIGRAMS
     Route: 048
     Dates: start: 20210417

REACTIONS (17)
  - Hypertension [Recovered/Resolved]
  - Sensory loss [Not Recovered/Not Resolved]
  - Blood pressure increased [Unknown]
  - Dizziness [Recovered/Resolved]
  - Bone disorder [Not Recovered/Not Resolved]
  - Cerebrovascular accident [Unknown]
  - Oral disorder [Recovered/Resolved]
  - Speech disorder [Recovered/Resolved]
  - Joint dislocation [Not Recovered/Not Resolved]
  - Fatigue [Recovering/Resolving]
  - Cerebral thrombosis [Unknown]
  - Blindness [Recovered/Resolved]
  - Pain in extremity [Recovered/Resolved]
  - Rheumatoid arthritis [Not Recovered/Not Resolved]
  - Finger deformity [Not Recovered/Not Resolved]
  - Unevaluable event [Recovered/Resolved]
  - Rheumatoid arthritis [Not Recovered/Not Resolved]

NARRATIVE: CASE EVENT DATE: 20240301
